FAERS Safety Report 8444607-3 (Version None)
Quarter: 2012Q2

REPORT INFORMATION
  Report Type: 
  Country: None (occurrence: None)
  Receive Date: 20120618
  Receipt Date: 20120608
  Transmission Date: 20120825
  Serious: Yes (Other)
  Sender: FDA-Public Use
  Company Number: US-BAYER-2012-027447

PATIENT
  Age: 22 Year
  Sex: Female

DRUGS (8)
  1. ROLAIDS [Concomitant]
  2. ZANTAC [Concomitant]
  3. LYSINE [Concomitant]
  4. LOESTRIN 1.5/30 [Concomitant]
  5. YAZ [Suspect]
     Dosage: UNK
     Dates: start: 20080701
  6. IBUPROFEN [Concomitant]
  7. IBUPROFEN (ADVIL) [Concomitant]
  8. NEXIUM [Concomitant]
     Indication: GASTROOESOPHAGEAL REFLUX DISEASE

REACTIONS (9)
  - BILE DUCT STONE [None]
  - BILIARY COLIC [None]
  - INJURY [None]
  - GASTROOESOPHAGEAL REFLUX DISEASE [None]
  - ABDOMINAL DISCOMFORT [None]
  - ANXIETY [None]
  - ANHEDONIA [None]
  - PAIN [None]
  - CHOLECYSTITIS CHRONIC [None]
